FAERS Safety Report 23415806 (Version 1)
Quarter: 2024Q1

REPORT INFORMATION
  Report Type: Spontaneous
  Country: US (occurrence: US)
  Receive Date: 20240118
  Receipt Date: 20240118
  Transmission Date: 20240410
  Serious: Yes (Hospitalization, Other)
  Sender: FDA-Public Use
  Company Number: US-MLMSERVICE-20231226-4745935-1

PATIENT
  Age: 74 Year
  Sex: Female

DRUGS (4)
  1. DEPO-MEDROL [Suspect]
     Active Substance: METHYLPREDNISOLONE ACETATE
     Indication: Back pain
     Dosage: TOTAL 6 ML SOLUTION CONTAINING 2 ML OF 1% LIDOCAINE, 80 MG OF METHYLPREDNISOLONE (2 ML OF 40 MG/ML D
     Route: 008
  2. IOHEXOL [Suspect]
     Active Substance: IOHEXOL
     Dosage: 1 MILLILITER
     Route: 008
  3. LIDOCAINE [Suspect]
     Active Substance: LIDOCAINE
     Indication: Back pain
     Dosage: TOTAL 6 ML SOLUTION CONTAINING 2 ML OF 1% LIDOCAINE, 80 MG OF METHYLPREDNISOLONE (2 ML OF 40 MG/ML D
     Route: 008
  4. SODIUM CHLORIDE [Suspect]
     Active Substance: SODIUM CHLORIDE
     Indication: Back pain
     Dosage: TOTAL 6 ML SOLUTION CONTAINING 2 ML OF 1% LIDOCAINE, 80 MG OF METHYLPREDNISOLONE (2 ML OF 40 MG/ML D
     Route: 008

REACTIONS (3)
  - Meningitis aseptic [Recovered/Resolved]
  - Product administration error [Recovered/Resolved]
  - Meningitis chemical [Recovered/Resolved]
